FAERS Safety Report 10340058 (Version 1)
Quarter: 2014Q3

REPORT INFORMATION
  Report Type: Spontaneous
  Country: SE (occurrence: SE)
  Receive Date: 20140724
  Receipt Date: 20140724
  Transmission Date: 20150326
  Serious: Yes (Life-Threatening, Hospitalization)
  Sender: FDA-Public Use
  Company Number: SE-ASTRAZENECA-2014SE52933

PATIENT
  Age: 58 Year
  Sex: Male

DRUGS (2)
  1. BRILIQUE [Suspect]
     Active Substance: TICAGRELOR
     Route: 048
     Dates: start: 201307, end: 201407
  2. TROMBYL [Concomitant]
     Active Substance: ASPIRIN
     Route: 048

REACTIONS (4)
  - Injury [Unknown]
  - Splenic haematoma [Unknown]
  - Fall [Unknown]
  - Traumatic haemorrhage [Recovered/Resolved]

NARRATIVE: CASE EVENT DATE: 20140704
